FAERS Safety Report 20715346 (Version 2)
Quarter: 2022Q2

REPORT INFORMATION
  Report Type: Spontaneous
  Country: US (occurrence: US)
  Receive Date: 20220415
  Receipt Date: 20220519
  Transmission Date: 20220720
  Serious: Yes (Other)
  Sender: FDA-Public Use
  Company Number: US-PFIZER INC-202200574673

PATIENT

DRUGS (1)
  1. RUXIENCE [Suspect]
     Active Substance: RITUXIMAB-PVVR
     Dosage: 783.8 MG
     Dates: end: 202204

REACTIONS (4)
  - Drug hypersensitivity [Unknown]
  - Throat irritation [Unknown]
  - Dysphagia [Unknown]
  - Abdominal discomfort [Unknown]
